FAERS Safety Report 12941355 (Version 1)
Quarter: 2016Q4

REPORT INFORMATION
  Report Type: Report from Study
  Country: US (occurrence: US)
  Receive Date: 20161114
  Receipt Date: 20161114
  Transmission Date: 20170207
  Serious: Yes (Death)
  Sender: FDA-Public Use
  Company Number: US-EXELIXIS-CABO-16007510

PATIENT
  Age: 70 Year
  Sex: Male

DRUGS (12)
  1. GERITOL [Concomitant]
     Active Substance: MINERALS\VITAMINS
  2. FENOFIBRATE. [Concomitant]
     Active Substance: FENOFIBRATE
  3. CARDIZEM [Concomitant]
     Active Substance: DILTIAZEM HYDROCHLORIDE
  4. ERYTHROMYCIN. [Concomitant]
     Active Substance: ERYTHROMYCIN
  5. LEVOTHYROXINE. [Concomitant]
     Active Substance: LEVOTHYROXINE
  6. OXYCODONE [Concomitant]
     Active Substance: OXYCODONE
  7. ALLOPURINOL. [Concomitant]
     Active Substance: ALLOPURINOL
  8. COMBIVENT [Concomitant]
     Active Substance: ALBUTEROL SULFATE\IPRATROPIUM BROMIDE
  9. PREDNISONE. [Concomitant]
     Active Substance: PREDNISONE
  10. GABAPENTIN. [Concomitant]
     Active Substance: GABAPENTIN
  11. CABOMETYX [Suspect]
     Active Substance: CABOZANTINIB S-MALATE
     Indication: RENAL CANCER
     Dosage: 60 MG, QD
     Route: 048
     Dates: start: 20161019
  12. ASPIRIN. [Concomitant]
     Active Substance: ASPIRIN

REACTIONS (1)
  - Death [Fatal]

NARRATIVE: CASE EVENT DATE: 20161103
